FAERS Safety Report 18813863 (Version 2)
Quarter: 2021Q2

REPORT INFORMATION
  Report Type: Spontaneous
  Country: US (occurrence: US)
  Receive Date: 20210201
  Receipt Date: 20210527
  Transmission Date: 20210717
  Serious: Yes (Other)
  Sender: FDA-Public Use
  Company Number: US-SA-2021SA025104

PATIENT
  Age: 37 Year
  Sex: Female

DRUGS (6)
  1. NASONEX [Concomitant]
     Active Substance: MOMETASONE FUROATE
     Indication: ALOPECIA
     Dosage: UNK
  2. TAXOTERE [Suspect]
     Active Substance: DOCETAXEL
     Indication: BREAST CANCER FEMALE
     Dosage: UNK UNK, Q3W
     Route: 065
     Dates: start: 20080104, end: 20080104
  3. DOXORUBICIN [Concomitant]
     Active Substance: DOXORUBICIN
  4. SINGULAIR [Concomitant]
     Active Substance: MONTELUKAST SODIUM
     Indication: ALOPECIA
  5. PALGIC [Concomitant]
     Active Substance: CARBINOXAMINE MALEATE
     Indication: ALOPECIA
  6. TAXOTERE [Suspect]
     Active Substance: DOCETAXEL
     Dosage: UNK UNK, Q3W
     Route: 065
     Dates: start: 20080613, end: 20080613

REACTIONS (6)
  - Anxiety [Unknown]
  - Impaired quality of life [Unknown]
  - Alopecia [Not Recovered/Not Resolved]
  - Emotional distress [Unknown]
  - Pain [Unknown]
  - Psychological trauma [Unknown]

NARRATIVE: CASE EVENT DATE: 2008
